FAERS Safety Report 7536070-1 (Version None)
Quarter: 2011Q2

REPORT INFORMATION
  Report Type: 
  Country: None (occurrence: None)
  Receive Date: 20110602
  Receipt Date: 20110520
  Transmission Date: 20111010
  Serious: Yes (Other)
  Sender: FDA-Public Use
  Company Number: MC201100240

PATIENT
  Sex: Male

DRUGS (2)
  1. ASPIRIN [Concomitant]
  2. ANGIOMAX [Suspect]
     Indication: CAROTID ARTERY STENT INSERTION
     Dosage: 0.75 MG/KG, BOLUS; 1.75 MG/KG, HR

REACTIONS (5)
  - SLOW RESPONSE TO STIMULI [None]
  - CEREBROVASCULAR ACCIDENT [None]
  - CARDIOVASCULAR DISORDER [None]
  - ARTERIAL OCCLUSIVE DISEASE [None]
  - OFF LABEL USE [None]
